FAERS Safety Report 24292716 (Version 6)
Quarter: 2025Q3

REPORT INFORMATION
  Report Type: Report from Study
  Country: JP (occurrence: JP)
  Receive Date: 20240906
  Receipt Date: 20250929
  Transmission Date: 20251021
  Serious: Yes (Death, Life-Threatening, Hospitalization, Other)
  Sender: BRISTOL-MYERS SQUIBB COMPANY
  Company Number: JP-ONO-2024JP018316

PATIENT
  Age: 61 Year
  Sex: Male
  Weight: 59.1 kg

DRUGS (3)
  1. OPDIVO [Suspect]
     Active Substance: NIVOLUMAB
     Indication: Lung squamous cell carcinoma stage III
     Dosage: 3 CYCLES
     Dates: start: 20240424, end: 20240605
  2. CARBOPLATIN [Suspect]
     Active Substance: CARBOPLATIN
     Indication: Lung squamous cell carcinoma stage III
     Dosage: AUC 5, 3 CYCLES
     Dates: start: 20240424, end: 20240605
  3. PACLITAXEL [Suspect]
     Active Substance: PACLITAXEL
     Indication: Lung squamous cell carcinoma stage III
     Dosage: 3 CYCLES
     Dates: start: 20240424, end: 20240605

REACTIONS (5)
  - Cytokine release syndrome [Fatal]
  - Condition aggravated [Unknown]
  - Rash [Recovered/Resolved]
  - Disseminated intravascular coagulation [Unknown]
  - Immune-mediated lung disease [Fatal]

NARRATIVE: CASE EVENT DATE: 20240508
